FAERS Safety Report 8279750-5 (Version None)
Quarter: 2012Q2

REPORT INFORMATION
  Report Type: 
  Country: None (occurrence: None)
  Receive Date: 20120412
  Receipt Date: 20111107
  Transmission Date: 20120825
  Serious: Yes (Other)
  Sender: FDA-Public Use
  Company Number: US-ASTRAZENECA-2011SE18891

PATIENT
  Age: 49 Year
  Sex: Male
  Weight: 134.7 kg

DRUGS (5)
  1. ADVAIR DISKUS 100/50 [Concomitant]
     Indication: LUNG DISORDER
     Dosage: 250/50 DAILY
  2. NEXIUM [Suspect]
     Indication: EMPHYSEMA
     Route: 048
     Dates: start: 20110223
  3. SPIRIVA [Concomitant]
     Indication: LUNG DISORDER
  4. VENTOLIN [Concomitant]
     Indication: LUNG DISORDER
     Dosage: HFA
  5. NEXIUM [Suspect]
     Indication: GASTROOESOPHAGEAL REFLUX DISEASE
     Route: 048
     Dates: start: 20110223

REACTIONS (5)
  - GASTRIC DISORDER [None]
  - APHAGIA [None]
  - NAUSEA [None]
  - CHEST PAIN [None]
  - VOMITING [None]
